FAERS Safety Report 7137882-9 (Version None)
Quarter: 2010Q4

REPORT INFORMATION
  Report Type: 
  Country: None (occurrence: None)
  Receive Date: 20101206
  Receipt Date: 20101123
  Transmission Date: 20110411
  Serious: Yes (Hospitalization, Other)
  Sender: FDA-Public Use
  Company Number: PHHY2009DE01029

PATIENT
  Age: 57 Year
  Sex: Female
  Weight: 80 kg

DRUGS (11)
  1. DIOVAN [Suspect]
     Indication: HYPERTENSION
     Dosage: 160 MG, BID
     Route: 048
     Dates: end: 20080229
  2. RAMIPRIL [Interacting]
     Indication: HYPERTENSION
     Dosage: 10 MG, BID
     Route: 048
     Dates: end: 20080229
  3. SPIRONOLACTONE [Interacting]
     Indication: HYPERTENSION
     Dosage: 25 MG, QD
     Route: 048
     Dates: start: 20080219, end: 20080229
  4. METOPROLOL SUCCINATE [Concomitant]
     Indication: HYPERTENSION
     Dosage: 47.5 MG, BID
     Route: 048
  5. EBRANTIL [Concomitant]
     Indication: HYPERTENSION
     Dosage: 30 MG, BID
     Route: 048
  6. FUROSEMIDE [Concomitant]
     Indication: HYPERTENSION
     Dosage: 40 MG, QD
     Route: 048
     Dates: end: 20080229
  7. HCT-GAMMA [Concomitant]
     Indication: CARDIAC FAILURE
     Dosage: 25 MG, QD
     Route: 048
     Dates: end: 20080229
  8. INSUMAN INFUSAT [Concomitant]
     Indication: TYPE 1 DIABETES MELLITUS
     Dosage: 4 DF, QD
     Route: 058
     Dates: start: 19810101
  9. LEVOTHYROXINE SODIUM [Concomitant]
     Indication: HYPOTHYROIDISM
     Dosage: 25 UG, QD
     Route: 048
  10. MOXONIDINE [Concomitant]
     Indication: HYPERTENSION
     Dosage: 0.2 MG, TID
  11. SIMVASTATIN [Concomitant]
     Indication: HYPERCHOLESTEROLAEMIA
     Dosage: 40 MG, QD
     Route: 048

REACTIONS (6)
  - CHEST DISCOMFORT [None]
  - DRUG INTERACTION [None]
  - HYPERKALAEMIA [None]
  - HYPERTENSION [None]
  - MALAISE [None]
  - VOMITING [None]
